FAERS Safety Report 19429196 (Version 3)
Quarter: 2021Q3

REPORT INFORMATION
  Report Type: Spontaneous
  Country: DE (occurrence: DE)
  Receive Date: 20210617
  Receipt Date: 20210820
  Transmission Date: 20211014
  Serious: Yes (Life-Threatening, Hospitalization, Other)
  Sender: FDA-Public Use
  Company Number: DE-B.I. PHARMACEUTICALS,INC./RIDGEFIELD-2021-BI-109793

PATIENT
  Age: 65 Year
  Sex: Female
  Weight: 80 kg

DRUGS (6)
  1. HUMALOG [Concomitant]
     Active Substance: INSULIN LISPRO
     Indication: PRODUCT USED FOR UNKNOWN INDICATION
     Dosage: 33?22?22 ? INUSLIN PERFUSOR
  2. JARDIANCE [Suspect]
     Active Substance: EMPAGLIFLOZIN
     Indication: TYPE 2 DIABETES MELLITUS
     Dosage: 1?0?0
     Route: 048
  3. PANTOZOLE [Concomitant]
     Active Substance: PANTOPRAZOLE SODIUM
     Indication: PRODUCT USED FOR UNKNOWN INDICATION
     Dosage: 1?0?0
  4. METOPROLOL. [Concomitant]
     Active Substance: METOPROLOL
     Indication: PRODUCT USED FOR UNKNOWN INDICATION
     Dosage: 1?0?0
  5. ASPIRIN. [Concomitant]
     Active Substance: ASPIRIN
     Indication: PRODUCT USED FOR UNKNOWN INDICATION
  6. ATORVASTATIN [Concomitant]
     Active Substance: ATORVASTATIN
     Indication: PRODUCT USED FOR UNKNOWN INDICATION
     Dosage: 0?0?1

REACTIONS (23)
  - Coronary artery disease [Unknown]
  - Metabolic acidosis [Unknown]
  - Cerebral artery stenosis [Unknown]
  - Stupor [Unknown]
  - Diabetic ketoacidosis [Unknown]
  - Tracheostomy [Unknown]
  - Blood bicarbonate abnormal [Unknown]
  - Hypercapnia [Unknown]
  - Coronary artery stenosis [Unknown]
  - Blood glucose abnormal [Unknown]
  - Pleural effusion [Unknown]
  - Haemodynamic instability [Unknown]
  - Tachypnoea [Unknown]
  - Acute myocardial infarction [Unknown]
  - Atrioventricular block complete [Unknown]
  - Tachycardia [Unknown]
  - Hyperglycaemia [Unknown]
  - Lung opacity [Unknown]
  - Cardiac arrest [Unknown]
  - Acute respiratory failure [Unknown]
  - Blood catecholamines abnormal [Unknown]
  - Myocardial necrosis marker increased [Unknown]
  - Hypoxia [Unknown]

NARRATIVE: CASE EVENT DATE: 20210417
